FAERS Safety Report 8957338 (Version 3)
Quarter: 2013Q1

REPORT INFORMATION
  Report Type: Spontaneous
  Country: US (occurrence: US)
  Receive Date: 20121211
  Receipt Date: 20130225
  Transmission Date: 20140127
  Serious: No
  Sender: FDA-Public Use
  Company Number: US-PFIZER INC-2012311886

PATIENT
  Age: 69 Year
  Sex: Male
  Weight: 113.38 kg

DRUGS (2)
  1. LYRICA [Suspect]
     Indication: ARTHRALGIA
     Dosage: 75 MG, 2X/DAY
     Route: 048
  2. LYRICA [Suspect]
     Indication: PAIN IN EXTREMITY

REACTIONS (2)
  - Sleep disorder [Unknown]
  - Local swelling [Unknown]
